FAERS Safety Report 11342763 (Version 1)
Quarter: 2015Q3

REPORT INFORMATION
  Report Type: Spontaneous
  Country: US (occurrence: US)
  Receive Date: 20150805
  Receipt Date: 20150805
  Transmission Date: 20151125
  Serious: No
  Sender: FDA-Public Use
  Company Number: ALCN2015US004277

PATIENT
  Age: 83 Year
  Sex: Female

DRUGS (1)
  1. SYSTANE GEL DROPS ANYTIME PROTECTION [Suspect]
     Active Substance: POLYETHYLENE GLYCOL 400
     Indication: DRY EYE
     Dosage: 1 GTT, PRN
     Route: 047
     Dates: start: 20150703

REACTIONS (2)
  - Vision blurred [Not Recovered/Not Resolved]
  - Medication residue present [Not Recovered/Not Resolved]

NARRATIVE: CASE EVENT DATE: 20150703
